FAERS Safety Report 10593698 (Version 3)
Quarter: 2015Q2

REPORT INFORMATION
  Report Type: Report from Study
  Country: US (occurrence: US)
  Receive Date: 20141119
  Receipt Date: 20150521
  Transmission Date: 20150821
  Serious: Yes (Other)
  Sender: FDA-Public Use
  Company Number: US-SA-2013SA124198

PATIENT
  Age: 59 Year
  Sex: Male

DRUGS (1)
  1. AUBAGIO [Suspect]
     Active Substance: TERIFLUNOMIDE
     Indication: MULTIPLE SCLEROSIS
     Route: 048
     Dates: start: 20131111

REACTIONS (15)
  - Motor dysfunction [Unknown]
  - Foot fracture [Unknown]
  - Libido decreased [Unknown]
  - Multiple sclerosis [Unknown]
  - Mobility decreased [Unknown]
  - Fall [Unknown]
  - Pruritus [Recovered/Resolved]
  - Incontinence [Unknown]
  - Epistaxis [Recovered/Resolved]
  - Nasopharyngitis [Unknown]
  - Rib fracture [Unknown]
  - Osteoarthritis [Unknown]
  - Constipation [Unknown]
  - Alopecia [Not Recovered/Not Resolved]
  - Diarrhoea [Not Recovered/Not Resolved]

NARRATIVE: CASE EVENT DATE: 201411
